FAERS Safety Report 5265595-7 (Version None)
Quarter: 2007Q1

REPORT INFORMATION
  Report Type: 
  Country: None (occurrence: None)
  Receive Date: 20061213
  Receipt Date: 20021022
  Transmission Date: 20070707
  Serious: No
  Sender: FDA-Public Use
  Company Number: 2002UW14267

PATIENT
  Age: 60 Year
  Sex: Female
  Weight: 61.2356 kg

DRUGS (1)
  1. NOLVADEX [Suspect]
     Indication: BREAST CANCER
     Dosage: 20 MG PO
     Route: 048
     Dates: start: 20000401

REACTIONS (3)
  - CERVIX NEOPLASM [None]
  - DENTAL CARIES [None]
  - FLUSHING [None]
